FAERS Safety Report 8345928-5 (Version None)
Quarter: 2012Q2

REPORT INFORMATION
  Report Type: 
  Country: None (occurrence: None)
  Receive Date: 20120507
  Receipt Date: 20120416
  Transmission Date: 20120825
  Serious: Yes (Other)
  Sender: FDA-Public Use
  Company Number: 2012MA003254

PATIENT
  Age: 75 Year
  Sex: Male

DRUGS (13)
  1. FUROSEMIDE [Suspect]
  2. CYSTEINE HYDROCHLORIDE [Suspect]
  3. FORMOTEROL FUMARATE [Suspect]
  4. SYMBICORT [Concomitant]
  5. ALBUTEROL SULFATE [Suspect]
  6. FORMOTEROL FUMARATE [Suspect]
     Dosage: INH
     Route: 055
  7. METFORMIN HYDROCHLORIDE [Suspect]
  8. ATORVASTATIN [Suspect]
  9. SPIRIVA [Concomitant]
  10. RAMIPRIL [Suspect]
     Indication: PRODUCT USED FOR UNKNOWN INDICATION
     Dosage: 5 MG; QD
  11. WARFARIN SODIUM [Suspect]
     Indication: ATRIAL FIBRILLATION
  12. PREDNISOLONE [Suspect]
     Indication: CHRONIC OBSTRUCTIVE PULMONARY DISEASE
  13. VERAPAMIL [Suspect]
     Indication: ATRIAL FIBRILLATION

REACTIONS (1)
  - HALLUCINATION [None]
